FAERS Safety Report 19732040 (Version 1)
Quarter: 2021Q3

REPORT INFORMATION
  Report Type: Spontaneous
  Country: CN (occurrence: CN)
  Receive Date: 20210820
  Receipt Date: 20210820
  Transmission Date: 20211014
  Serious: Yes (Other)
  Sender: FDA-Public Use
  Company Number: CN-SA-2021SA274653

PATIENT
  Age: 61 Year
  Sex: Female

DRUGS (3)
  1. LOBAPLATIN [Concomitant]
     Active Substance: LOBAPLATIN
     Indication: CHEMOTHERAPY
     Dosage: 40 MG, D2 LOBAPLATIN (21 DAYS AS A CYCLE)
     Dates: start: 20180805, end: 20180805
  2. DOCETAXEL. [Suspect]
     Active Substance: DOCETAXEL
     Indication: SQUAMOUS CELL CARCINOMA OF THE ORAL CAVITY
     Dosage: 100 MG, DAY 1, 21 DAYS AS A CYCLE
     Dates: start: 20180805, end: 20180805
  3. LOBAPLATIN [Concomitant]
     Active Substance: LOBAPLATIN
     Indication: SQUAMOUS CELL CARCINOMA OF THE ORAL CAVITY
     Dosage: 50 MG, D1 LOBAPLATIN (21 DAYS AS A CYCLE)
     Dates: start: 20180512, end: 20180512

REACTIONS (3)
  - Myelosuppression [Recovering/Resolving]
  - Off label use [Unknown]
  - Malignant neoplasm progression [Unknown]
